FAERS Safety Report 17610570 (Version 1)
Quarter: 2020Q2

REPORT INFORMATION
  Report Type: Spontaneous
  Country: US (occurrence: US)
  Receive Date: 20200401
  Receipt Date: 20200401
  Transmission Date: 20200713
  Serious: Yes (Hospitalization)
  Sender: FDA-Public Use
  Company Number: US-HORIZON-PRO-0260-2019

PATIENT
  Age: 9 Year
  Sex: Male

DRUGS (1)
  1. PROCYSBI [Suspect]
     Active Substance: CYSTEAMINE BITARTRATE
     Indication: CYSTINOSIS
     Dosage: 675 MG (9 X 75MG CAPSULES) BY G-TUBE TWICE DAILY
     Route: 050
     Dates: start: 20151013

REACTIONS (3)
  - Salmonella bacteraemia [Unknown]
  - Escherichia infection [Unknown]
  - Atypical haemolytic uraemic syndrome [Unknown]

NARRATIVE: CASE EVENT DATE: 2019
